FAERS Safety Report 7744603-5 (Version None)
Quarter: 2011Q3

REPORT INFORMATION
  Report Type: 
  Country: None (occurrence: None)
  Receive Date: 20110912
  Receipt Date: 20110909
  Transmission Date: 20111222
  Serious: Yes (Other)
  Sender: FDA-Public Use
  Company Number: JP-PFIZER INC-2011184049

PATIENT
  Age: 83 Year
  Sex: Female

DRUGS (3)
  1. CLARITIN [Concomitant]
     Indication: HYPERSENSITIVITY
  2. LYRICA [Suspect]
     Dosage: UNK
     Route: 048
     Dates: start: 20110701
  3. CELECOXIB [Suspect]
     Dosage: UNK
     Route: 048
     Dates: start: 20110701

REACTIONS (2)
  - URINE OUTPUT DECREASED [None]
  - OEDEMA [None]
